FAERS Safety Report 18219338 (Version 1)
Quarter: 2020Q3

REPORT INFORMATION
  Report Type: Spontaneous
  Country: US (occurrence: US)
  Receive Date: 20200901
  Receipt Date: 20200901
  Transmission Date: 20201103
  Serious: Yes (Other)
  Sender: FDA-Public Use
  Company Number: NVSC2020US240180

PATIENT

DRUGS (1)
  1. IMIQUIMOD. [Suspect]
     Active Substance: IMIQUIMOD
     Indication: MALIGNANT MELANOMA IN SITU
     Dosage: 3 TO 5 TIMES PER WEEK
     Route: 061

REACTIONS (2)
  - Malignant melanoma in situ [Unknown]
  - Product use in unapproved indication [Unknown]
